FAERS Safety Report 7709197-9 (Version None)
Quarter: 2011Q3

REPORT INFORMATION
  Report Type: 
  Country: None (occurrence: None)
  Receive Date: 20110825
  Receipt Date: 20110818
  Transmission Date: 20111222
  Serious: Yes (Other)
  Sender: FDA-Public Use
  Company Number: PHHY2011BR74342

PATIENT
  Sex: Female

DRUGS (3)
  1. TRILEPTAL [Suspect]
     Dosage: ONE TABLET AND HALF
     Route: 048
  2. TRILEPTAL [Suspect]
     Dosage: TWO TABLETS AND HALF TWICE A DAY
     Route: 048
  3. TRILEPTAL [Suspect]
     Dosage: 1 DF, DAILY
     Route: 048

REACTIONS (1)
  - BRAIN NEOPLASM [None]
